FAERS Safety Report 6829553-0 (Version None)
Quarter: 2010Q3

REPORT INFORMATION
  Report Type: 
  Country: None (occurrence: None)
  Receive Date: 20100709
  Receipt Date: 20070402
  Transmission Date: 20110219
  Serious: Yes (Other)
  Sender: FDA-Public Use
  Company Number: US-PFIZER INC-2007011181

PATIENT
  Sex: Female
  Weight: 83.9 kg

DRUGS (17)
  1. CHANTIX [Suspect]
     Indication: EX-TOBACCO USER
     Route: 048
     Dates: start: 20070130, end: 20070205
  2. PREMARIN [Concomitant]
  3. SYNTHROID [Concomitant]
  4. MUCINEX [Concomitant]
  5. MINOCYCLINE [Concomitant]
  6. MONTELUKAST SODIUM [Concomitant]
  7. ASTELIN [Concomitant]
  8. LUNESTA [Concomitant]
  9. ULTRAM [Concomitant]
  10. NEXIUM [Concomitant]
  11. ZANTAC [Concomitant]
  12. TOBRADEX [Concomitant]
  13. ALDACTONE [Concomitant]
  14. DIAZEPAM [Concomitant]
  15. CYMBALTA [Concomitant]
  16. TRICOR [Concomitant]
  17. TYLENOL-500 [Concomitant]

REACTIONS (2)
  - DISORIENTATION [None]
  - FATIGUE [None]
